FAERS Safety Report 10130174 (Version 3)
Quarter: 2014Q2

REPORT INFORMATION
  Report Type: Spontaneous
  Country: US (occurrence: US)
  Receive Date: 20140428
  Receipt Date: 20140609
  Transmission Date: 20141212
  Serious: No
  Sender: FDA-Public Use
  Company Number: US-PFIZER INC-2014114394

PATIENT
  Age: 90 Year
  Sex: Female

DRUGS (12)
  1. ADVIL [Suspect]
     Dosage: UNK
  2. LEVOXYL [Suspect]
     Dosage: UNK
  3. OMEGA-3 FISH OIL CONCENTRATE [Suspect]
     Dosage: UNK
  4. CALCIUM CARBONATE [Suspect]
     Dosage: UNK
  5. CHOLECALCIFEROL [Suspect]
     Dosage: UNK
  6. AIRBRON [Suspect]
     Dosage: UNK
  7. BETOPTIC [Suspect]
     Indication: GLAUCOMA
     Dosage: UNK
     Route: 047
  8. TIMOLOL [Suspect]
     Dosage: 0.5 %, UNK
  9. ZETIA [Suspect]
     Dosage: UNK
  10. VIT C [Suspect]
     Dosage: UNK
  11. VIT B12 [Suspect]
     Dosage: UNK
  12. MAGNESIUM/ZINC [Suspect]
     Dosage: UNK

REACTIONS (1)
  - Drug hypersensitivity [Unknown]
